FAERS Safety Report 6706740-3 (Version None)
Quarter: 2010Q2

REPORT INFORMATION
  Report Type: 
  Country: None (occurrence: None)
  Receive Date: 20100503
  Receipt Date: 20100421
  Transmission Date: 20101027
  Serious: Yes (Other)
  Sender: FDA-Public Use
  Company Number: JP-PFIZER INC-2010052004

PATIENT
  Age: 77 Year
  Sex: Female

DRUGS (2)
  1. FARMORUBICIN [Suspect]
     Indication: HEPATIC NEOPLASM MALIGNANT
     Dosage: 15 MG, ONCE
     Route: 013
     Dates: start: 20100419, end: 20100419
  2. LIPIODOL [Concomitant]
     Route: 013
     Dates: start: 20100419, end: 20100419

REACTIONS (4)
  - BLOOD PRESSURE DECREASED [None]
  - BRADYCARDIA [None]
  - CHEST DISCOMFORT [None]
  - FEELING ABNORMAL [None]
